FAERS Safety Report 17482886 (Version 1)
Quarter: 2020Q1

REPORT INFORMATION
  Report Type: Spontaneous
  Country: GR (occurrence: GR)
  Receive Date: 20200302
  Receipt Date: 20200302
  Transmission Date: 20200409
  Serious: Yes (Hospitalization)
  Sender: FDA-Public Use
  Company Number: GR-IGSA-SR10009943

PATIENT

DRUGS (34)
  1. VEPESID [Suspect]
     Active Substance: ETOPOSIDE
     Indication: NON-HODGKIN^S LYMPHOMA
     Dosage: UNK, UNKNOWN
     Route: 058
  2. VEPESID [Suspect]
     Active Substance: ETOPOSIDE
     Dosage: 90 MG, UNKNOWN
     Route: 042
     Dates: start: 20191119, end: 20200113
  3. CHOP [Suspect]
     Active Substance: CYCLOPHOSPHAMIDE\DOXORUBICIN\PREDNISONE\VINCRISTINE
     Indication: DIFFUSE LARGE B-CELL LYMPHOMA
     Dosage: UNK, UNKNOWN
     Route: 065
     Dates: start: 20190513, end: 20191013
  4. RITUXIMAB. [Suspect]
     Active Substance: RITUXIMAB
     Indication: DIFFUSE LARGE B-CELL LYMPHOMA
     Dosage: UNK UNK, UNKNOWN
     Route: 042
     Dates: start: 20191113, end: 20191223
  5. ALDACTONE [Suspect]
     Active Substance: SPIRONOLACTONE
     Dosage: UNK UNK, UNKNOWN
     Route: 042
  6. CANCIDAS [Suspect]
     Active Substance: CASPOFUNGIN ACETATE
     Indication: NON-HODGKIN^S LYMPHOMA
     Dosage: 50 MG, UNKNOWN
     Route: 042
     Dates: start: 20200105, end: 20200113
  7. VALTREX [Suspect]
     Active Substance: VALACYCLOVIR HYDROCHLORIDE
     Dosage: 500 G, UNKNOWN
     Route: 048
     Dates: start: 20200108, end: 20200113
  8. VALTREX [Suspect]
     Active Substance: VALACYCLOVIR HYDROCHLORIDE
     Dosage: 500 MG, UNKNOWN
     Route: 048
     Dates: start: 20190513, end: 20190516
  9. VALTREX [Suspect]
     Active Substance: VALACYCLOVIR HYDROCHLORIDE
     Dosage: UNK UNK, UNKNOWN
     Route: 042
  10. RITUXAN HYCELA [Suspect]
     Active Substance: HYALURONIDASE (HUMAN RECOMBINANT)\RITUXIMAB
     Indication: DIFFUSE LARGE B-CELL LYMPHOMA
     Dosage: UNK, UNKNOWN
     Route: 058
     Dates: start: 20190513, end: 20190625
  11. FILGRASTIM [Suspect]
     Active Substance: FILGRASTIM
     Indication: LEUKOPENIA
     Dosage: UNK UNK, UNKNOWN
     Route: 058
     Dates: start: 20190523, end: 20200117
  12. ESHAP [Suspect]
     Active Substance: CISPLATIN\CYTARABINE\ETOPOSIDE\METHYLPREDNISOLONE (ESHAP)
     Indication: DIFFUSE LARGE B-CELL LYMPHOMA
     Dosage: UNK, UNKNOWN
     Route: 065
     Dates: start: 20191113, end: 20191223
  13. MABTHERA [Suspect]
     Active Substance: RITUXIMAB
     Indication: NON-HODGKIN^S LYMPHOMA
     Dosage: 650 MG, UNKNOWN
     Route: 042
     Dates: start: 20191222, end: 20200113
  14. MEROPENEM. [Suspect]
     Active Substance: MEROPENEM
     Indication: NON-HODGKIN^S LYMPHOMA
     Dosage: 2 G, UNKNOWN
     Route: 042
     Dates: start: 20200103, end: 20200113
  15. LASIX [Suspect]
     Active Substance: FUROSEMIDE
     Indication: NON-HODGKIN^S LYMPHOMA
     Dosage: UNK, UNKNOWN
     Route: 042
     Dates: start: 20200110, end: 20200113
  16. EPOETIN [Suspect]
     Active Substance: ERYTHROPOIETIN
     Indication: ANAEMIA
     Dosage: UNK UNK, UNKNOWN
     Route: 058
     Dates: start: 20190523, end: 20200124
  17. NORVASC [Suspect]
     Active Substance: AMLODIPINE BESYLATE
     Indication: HYPERTENSION
     Dosage: 5 MG, UNKNOWN
     Route: 048
     Dates: start: 20190515, end: 20190516
  18. NORVASC [Suspect]
     Active Substance: AMLODIPINE BESYLATE
     Dosage: UNK, UNKNOWN
     Route: 058
  19. DOXORUBICIN [Suspect]
     Active Substance: DOXORUBICIN
     Dosage: ()
     Route: 058
  20. ALDACTONE [Suspect]
     Active Substance: SPIRONOLACTONE
     Indication: NON-HODGKIN^S LYMPHOMA
     Dosage: 100 MG, UNKNOWN
     Route: 048
     Dates: start: 20200105, end: 20200112
  21. CHLORPHENAMINE [Suspect]
     Active Substance: CHLORPHENIRAMINE MALEATE
     Dosage: UNK UNK, UNKNOWN
     Route: 048
     Dates: start: 20200110, end: 20200112
  22. RITUXIMAB. [Suspect]
     Active Substance: RITUXIMAB
     Dosage: UNK UNK, UNKNOWN
     Route: 042
     Dates: start: 20190513, end: 20191013
  23. MABTHERA [Suspect]
     Active Substance: RITUXIMAB
     Indication: NON-HODGKIN^S LYMPHOMA
     Dosage: 1400 MG, UNKNOWN
     Route: 058
     Dates: start: 20190625, end: 20191009
  24. MABTHERA [Suspect]
     Active Substance: RITUXIMAB
     Dosage: 1400 MG, UNKNOWN
     Route: 058
     Dates: start: 20191113, end: 20191210
  25. VALTREX [Suspect]
     Active Substance: VALACYCLOVIR HYDROCHLORIDE
     Indication: NON-HODGKIN^S LYMPHOMA
     Dosage: UNK UNK, UNKNOWN
     Route: 058
  26. CHLORPHENAMINE [Suspect]
     Active Substance: CHLORPHENIRAMINE MALEATE
     Indication: NON-HODGKIN^S LYMPHOMA
     Dosage: UNK, UNKNOWN
     Route: 042
  27. DOXORUBICIN [Suspect]
     Active Substance: DOXORUBICIN
     Indication: NON-HODGKIN^S LYMPHOMA
     Dosage: 75 MG, UNKNOWN
     Route: 042
     Dates: start: 20190513, end: 20191009
  28. ARACYTINE [Suspect]
     Active Substance: CYTARABINE
     Indication: NON-HODGKIN^S LYMPHOMA
     Dosage: 3 G, UNKNOWN
     Route: 042
     Dates: start: 20191123, end: 20200113
  29. CUBICIN [Suspect]
     Active Substance: DAPTOMYCIN
     Indication: NON-HODGKIN^S LYMPHOMA
     Dosage: 350 MG, UNKNOWN
     Route: 042
     Dates: start: 20200102, end: 20200113
  30. HUMAN SERUM ALBUMIN [Suspect]
     Active Substance: ALBUMIN HUMAN
     Indication: NON-HODGKIN^S LYMPHOMA
     Dosage: 100 MG, UNKNOWN
     Route: 042
     Dates: start: 20200110, end: 20200113
  31. CISPLATIN. [Suspect]
     Active Substance: CISPLATIN
     Indication: NON-HODGKIN^S LYMPHOMA
     Dosage: UNK, UNKNOWN
     Route: 058
  32. CISPLATIN. [Suspect]
     Active Substance: CISPLATIN
     Dosage: 38 MG, UNKNOWN
     Route: 042
     Dates: start: 20191119, end: 20200113
  33. OMEPRAZOLE. [Suspect]
     Active Substance: OMEPRAZOLE
     Indication: NON-HODGKIN^S LYMPHOMA
     Dosage: UNK, UNKNOWN
     Route: 042
     Dates: start: 20191223, end: 20200113
  34. ARACYTINE [Suspect]
     Active Substance: CYTARABINE
     Dosage: UNK UNK, UNKNOWN
     Route: 058

REACTIONS (2)
  - Diffuse large B-cell lymphoma refractory [Unknown]
  - Disease progression [Unknown]
